FAERS Safety Report 22007020 (Version 3)
Quarter: 2023Q1

REPORT INFORMATION
  Report Type: Spontaneous
  Country: JP (occurrence: JP)
  Receive Date: 20230217
  Receipt Date: 20230323
  Transmission Date: 20230418
  Serious: Yes (Hospitalization, Other)
  Sender: FDA-Public Use
  Company Number: JP-MSD-M2023-06660

PATIENT
  Age: 8 Decade
  Sex: Female

DRUGS (2)
  1. KEYTRUDA [Suspect]
     Active Substance: PEMBROLIZUMAB
     Indication: Uterine cancer
     Dosage: 200 MILLIGRAM, Q3W
     Route: 041
     Dates: start: 20230203
  2. LENVATINIB MESYLATE [Suspect]
     Active Substance: LENVATINIB MESYLATE
     Indication: Uterine cancer
     Dosage: 14 MILLIGRAM, QD
     Route: 048
     Dates: start: 20230203, end: 20230315

REACTIONS (2)
  - Tumour lysis syndrome [Recovered/Resolved]
  - Malaise [Unknown]

NARRATIVE: CASE EVENT DATE: 20230212
